FAERS Safety Report 21931936 (Version 1)
Quarter: 2023Q1

REPORT INFORMATION
  Report Type: Spontaneous
  Country: LB (occurrence: LB)
  Receive Date: 20230131
  Receipt Date: 20230131
  Transmission Date: 20230418
  Serious: Yes (Other)
  Sender: FDA-Public Use
  Company Number: LB-Accord-297890

PATIENT
  Age: 80 Year
  Sex: Female

DRUGS (1)
  1. METHOTREXATE [Suspect]
     Active Substance: METHOTREXATE
     Indication: Neurodermatitis
     Dosage: TWO DOSES OF METHOTREXATE AT AN ORAL DOSE OF 15 MG/WEEK.
     Route: 048

REACTIONS (12)
  - Skin dystrophy [Recovered/Resolved]
  - Staphylococcal infection [Unknown]
  - Mouth ulceration [Unknown]
  - Pancytopenia [Recovered/Resolved]
  - Pallor [Recovered/Resolved]
  - Lethargy [Unknown]
  - Pain [Unknown]
  - Dermatitis bullous [Recovered/Resolved]
  - Hypopyon [Recovered/Resolved]
  - Odynophagia [Unknown]
  - Dysphagia [Unknown]
  - Dysphonia [Unknown]
